FAERS Safety Report 8760027 (Version 1)
Quarter: 2012Q4

REPORT INFORMATION
  Report Type: 
  Country: US (occurrence: US)
  Receive Date: 20120829
  Receipt Date: 20120829
  Transmission Date: 20130627
  Serious: Yes (Other)
  Sender: FDA-Public Use
  Company Number: PHEH2012US016580

PATIENT
  Sex: Female

DRUGS (13)
  1. TEGRETOL [Suspect]
     Indication: BIPOLAR DISORDER
     Dosage: 100 mg, 1.5 daily
  2. GABAPENTIN [Suspect]
     Dosage: 300 mg, TID
     Route: 048
     Dates: start: 20120802
  3. ESTRADIOL [Concomitant]
     Indication: HORMONE REPLACEMENT THERAPY
     Dosage: UNK UKN, UNK
  4. SYNTHROID [Concomitant]
     Indication: THYROID DISORDER
     Dosage: UNK UKN, UNK
  5. KLONOPIN [Concomitant]
     Indication: ANXIETY
     Dosage: UNK UKN, UNK
  6. ALLEGRA [Concomitant]
     Indication: HYPERSENSITIVITY
     Dosage: UNK UKN, UNK
  7. Z-PAK [Concomitant]
     Indication: INFECTION
     Dosage: UNK UKN, UNK
  8. OMEPRAZOLE [Concomitant]
     Indication: DYSPEPSIA
     Dosage: UNK UKN, UNK
  9. COMBIVENT [Concomitant]
     Indication: ASTHMA
     Dosage: UNK UKN, UNK
  10. SINGLEAR [Concomitant]
     Indication: ASTHMA
     Dosage: UNK UKN, UNK
  11. PROAIR (FLUTICASONE PROPIONATE) [Concomitant]
     Indication: ASTHMA
     Dosage: UNK UKN, UNK
  12. CALCIUM [Concomitant]
     Dosage: UNK UKN, UNK
  13. ANACIN [Concomitant]
     Indication: PAIN
     Dosage: UNK UKN, UNK

REACTIONS (22)
  - Rhinitis [Unknown]
  - Depression suicidal [Unknown]
  - Infection [Unknown]
  - Sinusitis [Unknown]
  - Epistaxis [Unknown]
  - Cyst [Unknown]
  - Vocal cord polyp [Unknown]
  - Tooth infection [Unknown]
  - Haemoptysis [Unknown]
  - Gastrooesophageal reflux disease [Unknown]
  - Dyspepsia [Unknown]
  - Fibromyalgia [Unknown]
  - Nerve injury [Unknown]
  - Amnesia [Unknown]
  - Rheumatoid arthritis [Unknown]
  - Photosensitivity reaction [Unknown]
  - Vision blurred [Unknown]
  - Atypical pneumonia [Unknown]
  - Contusion [Unknown]
  - Night sweats [Unknown]
  - Agitation [Unknown]
  - Irritability [Unknown]
